FAERS Safety Report 6770665-8 (Version None)
Quarter: 2010Q2

REPORT INFORMATION
  Report Type: 
  Country: None (occurrence: None)
  Receive Date: 20100615
  Receipt Date: 20100609
  Transmission Date: 20101027
  Serious: Yes (Hospitalization)
  Sender: FDA-Public Use
  Company Number: GB-WATSON-2010-07916

PATIENT
  Age: 43 Year
  Sex: Female
  Weight: 70 kg

DRUGS (1)
  1. IBUPROFEN TABLETS [Suspect]
     Indication: OVERDOSE
     Route: 048

REACTIONS (2)
  - OVERDOSE [None]
  - RHABDOMYOLYSIS [None]
